FAERS Safety Report 5725523-4 (Version None)
Quarter: 2008Q2

REPORT INFORMATION
  Report Type: 
  Country: None (occurrence: None)
  Receive Date: 20080501
  Receipt Date: 20080424
  Transmission Date: 20081010
  Serious: Yes (Other)
  Sender: FDA-Public Use
  Company Number: US-JNJFOC-20080407094

PATIENT
  Sex: Female
  Weight: 93.44 kg

DRUGS (2)
  1. FENTANYL TRANSDERMAL SYSTEM [Suspect]
     Indication: PAIN IN EXTREMITY
     Route: 062
  2. FENTANYL TRANSDERMAL SYSTEM [Suspect]
     Indication: BACK PAIN
     Route: 062

REACTIONS (5)
  - DRUG HYPERSENSITIVITY [None]
  - LIP DISORDER [None]
  - RASH [None]
  - SENSORY DISTURBANCE [None]
  - SWELLING FACE [None]
